FAERS Safety Report 22887988 (Version 18)
Quarter: 2024Q2

REPORT INFORMATION
  Report Type: Report from Study
  Country: RU (occurrence: RU)
  Receive Date: 20230831
  Receipt Date: 20240618
  Transmission Date: 20240716
  Serious: Yes (Other)
  Sender: FDA-Public Use
  Company Number: RU-002147023-NVSC2023RU185984

PATIENT
  Age: 0 Year
  Sex: Female
  Weight: 8 kg

DRUGS (4)
  1. ZOLGENSMA [Suspect]
     Active Substance: ONASEMNOGENE ABEPARVOVEC-XIOI
     Indication: Spinal muscular atrophy
     Dosage: 44 ML, ONCE/SINGLE
     Route: 042
     Dates: start: 20230804, end: 20230804
  2. PREDNISOLONE [Concomitant]
     Active Substance: PREDNISOLONE
     Indication: Product used for unknown indication
     Dosage: 8.75 MG, QD (1 TABLET + 1/4 TABLET. + 1/2 TABLET)
     Route: 065
     Dates: start: 20230803
  3. ESOMEPRAZOLE [Concomitant]
     Active Substance: ESOMEPRAZOLE
     Indication: Product used for unknown indication
     Dosage: 10 MG, QD (1 TIME PER DAY, AT NIGHT, DURING THE PERIOD OF PREDNISOLONE THERAPY)
     Route: 048
     Dates: start: 20230803
  4. CHOLECALCIFEROL [Concomitant]
     Active Substance: CHOLECALCIFEROL
     Indication: Product used for unknown indication
     Dosage: 1500 IU
     Route: 048
     Dates: start: 20230803

REACTIONS (2)
  - Blood test abnormal [Not Recovered/Not Resolved]
  - Body temperature increased [Recovered/Resolved]

NARRATIVE: CASE EVENT DATE: 20230805
